FAERS Safety Report 4724948-3 (Version None)
Quarter: 2005Q3

REPORT INFORMATION
  Report Type: 
  Country: None (occurrence: None)
  Receive Date: 20050721
  Receipt Date: 20050711
  Transmission Date: 20060218
  Serious: Yes (Hospitalization)
  Sender: FDA-Public Use
  Company Number: 2005BH000740

PATIENT
  Age: 57 Year
  Weight: 62 kg

DRUGS (8)
  1. EXTRANEAL [Suspect]
     Indication: RENAL FAILURE CHRONIC
     Dosage: 1500 ML/EVERY DAY; IP
     Route: 033
     Dates: start: 20040531, end: 20040831
  2. DIANEAL [Concomitant]
  3. ASPIRIN [Concomitant]
  4. ROCALTROL [Concomitant]
  5. SLOW-K [Concomitant]
  6. ALOSENN [Concomitant]
  7. BLOPRESS [Concomitant]
  8. LASIX [Concomitant]

REACTIONS (5)
  - CATHETER RELATED INFECTION [None]
  - HAEMODIALYSIS [None]
  - PROCEDURAL COMPLICATION [None]
  - STAPHYLOCOCCAL INFECTION [None]
  - URINARY TRACT INFECTION [None]
